FAERS Safety Report 4647927-3 (Version None)
Quarter: 2005Q2

REPORT INFORMATION
  Report Type: 
  Country: None (occurrence: None)
  Receive Date: 20050427
  Receipt Date: 20050427
  Transmission Date: 20051028
  Serious: No
  Sender: FDA-Public Use
  Company Number: None

PATIENT
  Sex: Female

DRUGS (2)
  1. DURAGESIC-50 [Suspect]
     Indication: CERVICOBRACHIAL SYNDROME
     Dosage: CHANGED EVERY 72 HOURS
  2. DURAGESIC-50 [Suspect]
     Indication: LUMBAR RADICULOPATHY
     Dosage: CHANGED EVERY 72 HOURS

REACTIONS (2)
  - DRUG INEFFECTIVE [None]
  - THERAPEUTIC RESPONSE UNEXPECTED WITH DRUG SUBSTITUTION [None]
